FAERS Safety Report 23636310 (Version 1)
Quarter: 2024Q1

REPORT INFORMATION
  Report Type: Spontaneous
  Country: QA (occurrence: QA)
  Receive Date: 20240315
  Receipt Date: 20240315
  Transmission Date: 20240410
  Serious: Yes (Hospitalization, Other)
  Sender: FDA-Public Use
  Company Number: QA-SANDOZ-SDZ2024QA027260

PATIENT
  Age: 52 Year
  Sex: Male

DRUGS (13)
  1. CYCLOPHOSPHAMIDE [Suspect]
     Active Substance: CYCLOPHOSPHAMIDE
     Indication: Lymphoma
     Dosage: UNK (FIRST AND SECOND CYCLES)
     Route: 065
     Dates: start: 20220623, end: 20220717
  2. CYCLOPHOSPHAMIDE [Suspect]
     Active Substance: CYCLOPHOSPHAMIDE
     Dosage: UNK (FOURTH CYCLE)
     Route: 065
     Dates: start: 20220911
  3. DOXORUBICIN [Suspect]
     Active Substance: DOXORUBICIN
     Indication: Lymphoma
     Dosage: UNK (FIRST AND SECOND CYCLES)
     Route: 065
     Dates: start: 20220623, end: 20220717
  4. DOXORUBICIN [Suspect]
     Active Substance: DOXORUBICIN
     Dosage: UNK (FOURTH CYCLE)
     Route: 065
     Dates: start: 20220911
  5. PREDNISONE [Suspect]
     Active Substance: PREDNISONE
     Indication: Lymphoma
     Dosage: UNK (FIRST AND SECOND CYCLES)
     Route: 065
     Dates: start: 20220623, end: 20220717
  6. PREDNISONE [Suspect]
     Active Substance: PREDNISONE
     Dosage: UNK (FOURTH CYCLE)
     Route: 065
     Dates: start: 20220911
  7. RITUXIMAB [Suspect]
     Active Substance: RITUXIMAB
     Dosage: UNK
     Route: 065
     Dates: start: 20221018
  8. RITUXIMAB [Suspect]
     Active Substance: RITUXIMAB
     Dosage: UNK
     Route: 065
     Dates: start: 20221109
  9. RITUXIMAB [Suspect]
     Active Substance: RITUXIMAB
     Indication: Lymphoma
     Dosage: UNK (FIRST AND SECOND CYCLES)
     Route: 065
     Dates: start: 20220623, end: 20220717
  10. RITUXIMAB [Suspect]
     Active Substance: RITUXIMAB
     Dosage: UNK (FOURTH CYCLE)
     Route: 065
     Dates: start: 20220911
  11. VINCRISTINE [Suspect]
     Active Substance: VINCRISTINE
     Indication: Lymphoma
     Dosage: UNK (FIRST AND SECOND CYCLES)
     Route: 065
     Dates: start: 20220623, end: 20220717
  12. VINCRISTINE [Suspect]
     Active Substance: VINCRISTINE
     Dosage: UNK (FOURTH CYCLE)
     Route: 065
     Dates: start: 20220911
  13. VINCRISTINE [Suspect]
     Active Substance: VINCRISTINE
     Dosage: UNK (REDUCED DOSE)
     Route: 065

REACTIONS (5)
  - Superficial vein thrombosis [Unknown]
  - Cellulitis [Unknown]
  - Treatment noncompliance [Unknown]
  - Hyperkalaemia [Unknown]
  - Acute kidney injury [Unknown]
